FAERS Safety Report 11654083 (Version 2)
Quarter: 2015Q4

REPORT INFORMATION
  Report Type: Spontaneous
  Country: JP (occurrence: JP)
  Receive Date: 20151023
  Receipt Date: 20151119
  Transmission Date: 20160304
  Serious: Yes (Hospitalization)
  Sender: FDA-Public Use
  Company Number: JP-TAKEDA-2015TJP019655

PATIENT
  Age: 88 Year
  Sex: Male

DRUGS (8)
  1. CASODEX [Concomitant]
     Active Substance: BICALUTAMIDE
     Dosage: 80 MG, QD
     Route: 048
  2. BEASLIMIN [Concomitant]
     Dosage: UNK
     Route: 041
     Dates: start: 201509
  3. FAMOTIDINE. [Concomitant]
     Active Substance: FAMOTIDINE
     Dosage: 20 MG, QD
     Route: 048
  4. FEBURIC [Concomitant]
     Active Substance: FEBUXOSTAT
     Dosage: 10 MG, QD
     Route: 048
  5. HARNAL [Concomitant]
     Active Substance: TAMSULOSIN HYDROCHLORIDE
     Dosage: 0.2 MG, QD
     Route: 048
  6. STRONGER NEO MINOPHAGEN C [Concomitant]
     Dosage: UNK
     Route: 041
     Dates: start: 201509
  7. SERMION                            /00396401/ [Concomitant]
     Dosage: 5 MG, TID
     Route: 048
  8. NESINA [Suspect]
     Active Substance: ALOGLIPTIN BENZOATE
     Indication: DIABETES MELLITUS
     Dosage: 25 MG, QD
     Route: 048
     Dates: start: 201508, end: 20151005

REACTIONS (3)
  - Eosinophil count increased [Recovering/Resolving]
  - Eczema [Recovered/Resolved]
  - Decreased appetite [Recovered/Resolved]

NARRATIVE: CASE EVENT DATE: 201509
